FAERS Safety Report 9883569 (Version 2)
Quarter: 2014Q1

REPORT INFORMATION
  Report Type: Report from Study
  Country: CA (occurrence: CA)
  Receive Date: 20140210
  Receipt Date: 20140210
  Transmission Date: 20141002
  Serious: Yes (Other)
  Sender: FDA-Public Use
  Company Number: CA-ROCHE-1247975

PATIENT
  Age: 50 Year
  Sex: Female

DRUGS (3)
  1. ZELBORAF [Suspect]
     Indication: METASTATIC MALIGNANT MELANOMA
     Route: 048
     Dates: start: 20130619, end: 201307
  2. SYNTHROID [Concomitant]
  3. TYLENOL EXTRA STRENGTH [Concomitant]

REACTIONS (6)
  - Erythema [Recovered/Resolved]
  - Oral fungal infection [Recovered/Resolved]
  - Musculoskeletal stiffness [Not Recovered/Not Resolved]
  - Pain in extremity [Not Recovered/Not Resolved]
  - Swelling face [Not Recovered/Not Resolved]
  - Joint range of motion decreased [Recovered/Resolved]
